FAERS Safety Report 4565104-1 (Version None)
Quarter: 2005Q1

REPORT INFORMATION
  Report Type: 
  Country: None (occurrence: None)
  Receive Date: 20050126
  Receipt Date: 20050118
  Transmission Date: 20050727
  Serious: Yes (Hospitalization)
  Sender: FDA-Public Use
  Company Number: 2005GB00120

PATIENT
  Age: 43 Year
  Sex: Male

DRUGS (2)
  1. ATENOLOL [Suspect]
     Indication: HYPERTENSION
     Dosage: 50 MG DAILY PO
     Route: 048
     Dates: start: 20041204, end: 20050104
  2. SIMVASTATIN [Concomitant]

REACTIONS (2)
  - DYSPNOEA [None]
  - MALAISE [None]
